FAERS Safety Report 8736364 (Version 2)
Quarter: 2012Q4

REPORT INFORMATION
  Report Type: 
  Country: US (occurrence: US)
  Receive Date: 20120822
  Receipt Date: 20120831
  Transmission Date: 20130627
  Serious: Yes (Death, Hospitalization)
  Sender: FDA-Public Use
  Company Number: US-TEVA-354070USA

PATIENT
  Age: 60 Year
  Sex: Female

DRUGS (1)
  1. FENTORA [Suspect]
     Dosage: every 4-6 hours prn
     Route: 002

REACTIONS (2)
  - Intracranial aneurysm [Not Recovered/Not Resolved]
  - Death [Fatal]
